FAERS Safety Report 17947025 (Version 1)
Quarter: 2020Q2

REPORT INFORMATION
  Report Type: Spontaneous
  Country: FR (occurrence: FR)
  Receive Date: 20200625
  Receipt Date: 20200625
  Transmission Date: 20200714
  Serious: Yes (Hospitalization)
  Sender: FDA-Public Use
  Company Number: FR-BAUSCH-BL-2020-017977

PATIENT
  Age: 56 Year
  Sex: Male

DRUGS (1)
  1. CICLOPIROX OLAMINE. [Suspect]
     Active Substance: CICLOPIROX OLAMINE
     Indication: INTERTRIGO
     Route: 003
     Dates: start: 20200415, end: 20200418

REACTIONS (4)
  - Administration site dermatitis [Recovering/Resolving]
  - Plantar erythema [Recovering/Resolving]
  - Nail injury [Recovering/Resolving]
  - Oedema peripheral [Recovering/Resolving]

NARRATIVE: CASE EVENT DATE: 20200415
